FAERS Safety Report 7230887-9 (Version None)
Quarter: 2011Q1

REPORT INFORMATION
  Report Type: 
  Country: None (occurrence: None)
  Receive Date: 20110118
  Receipt Date: 20110111
  Transmission Date: 20110831
  Serious: Yes (Death, Hospitalization)
  Sender: FDA-Public Use
  Company Number: JP-ROCHE-708181

PATIENT
  Age: 56 Year
  Sex: Male

DRUGS (18)
  1. HANP [Concomitant]
     Dosage: DAILY DOSE REPORTED AS 1.0 MG/V, 1-6A
     Route: 042
     Dates: start: 20100210, end: 20100301
  2. CIPROFLOXACIN HCL [Concomitant]
     Route: 048
     Dates: start: 20100222, end: 20100222
  3. URSO 250 [Concomitant]
     Dosage: START DATE: BEFORE INITIATION OF VALGANCICLOVIR.
     Route: 048
  4. KENALOG [Concomitant]
     Dosage: ROUTE: OROPHARYNGEAL, DAILY DOSE PRN.
  5. FUNGUARD [Concomitant]
     Route: 041
     Dates: start: 20100129, end: 20100211
  6. ACYCLOVIR [Concomitant]
     Dosage: DAILY DOSE REPORTED AS 1A FOR EACH DOSE EVERY OTHER DAY.
     Route: 041
     Dates: start: 20100205, end: 20100211
  7. BENAMBAX [Concomitant]
     Route: 041
     Dates: start: 20100209, end: 20100209
  8. KENKETSU GLOVENIN [Concomitant]
     Dosage: 5 G / WEEK, REPORTED ASKENKETU GLOVENIN I.
     Route: 042
     Dates: start: 20100210
  9. HACHIAZULE [Concomitant]
     Dosage: ROUTE: OROPHARYNGEAL
     Dates: end: 20100210
  10. VALGANCICLOVIR HCL [Suspect]
     Route: 048
     Dates: start: 20100315, end: 20100326
  11. FINIBAX [Concomitant]
     Dosage: DAILY DOSE REPORTED AS 250 MG, 2-3 V
     Route: 041
     Dates: start: 20100205, end: 20100214
  12. VALGANCICLOVIR HCL [Suspect]
     Route: 048
     Dates: start: 20100310, end: 20100310
  13. VALGANCICLOVIR HCL [Suspect]
     Indication: CYTOMEGALOVIRUS INFECTION
     Route: 048
     Dates: start: 20100209, end: 20100228
  14. CIPROFLOXACIN HCL [Concomitant]
     Dosage: DRUG NAME REPORTED AS CIPLOXAN
     Route: 048
     Dates: start: 20100215, end: 20100221
  15. AMLODIPINE [Concomitant]
     Route: 048
     Dates: start: 20100222
  16. GLYCERIN [Concomitant]
     Dosage: ROUTE REPORTED AS OCCLUSIVE DRESSING, DAILY DOSE AS PRN.
     Dates: end: 20100210
  17. PROGRAF [Concomitant]
     Dosage: DRUG NAME REPORTED AS PROGRAF (METABOLIC DRUGS, NOT ELSEWHERE CLASSIFIED)
     Route: 041
     Dates: start: 20100123, end: 20100301
  18. AMLODIPINE [Concomitant]
     Dosage: DRUG REPORTED AS AMLODIN OD,
     Route: 048
     Dates: end: 20100221

REACTIONS (6)
  - DISSEMINATED INTRAVASCULAR COAGULATION [None]
  - PNEUMONIA CYTOMEGALOVIRAL [None]
  - ACUTE RESPIRATORY DISTRESS SYNDROME [None]
  - PANCYTOPENIA [None]
  - PULMONARY HAEMORRHAGE [None]
  - HISTIOCYTOSIS HAEMATOPHAGIC [None]
